FAERS Safety Report 6488067-0 (Version None)
Quarter: 2009Q4

REPORT INFORMATION
  Report Type: 
  Country: None (occurrence: None)
  Receive Date: 20091210
  Receipt Date: 20091130
  Transmission Date: 20100525
  Serious: Yes (Disabling, Other)
  Sender: FDA-Public Use
  Company Number: US-PFIZER INC-2009182972

PATIENT
  Sex: Female
  Weight: 77 kg

DRUGS (4)
  1. SUTENT [Suspect]
     Indication: GASTROINTESTINAL STROMAL TUMOUR
     Dosage: 50 MG, 1X/DAY
     Dates: start: 20090206, end: 20090101
  2. PRILOSEC [Concomitant]
  3. NORVASC [Concomitant]
  4. CENTRUM [Concomitant]

REACTIONS (3)
  - EYE SWELLING [None]
  - FATIGUE [None]
  - HYPOTHYROIDISM [None]
